FAERS Safety Report 18307708 (Version 9)
Quarter: 2021Q2

REPORT INFORMATION
  Report Type: Spontaneous
  Country: US (occurrence: US)
  Receive Date: 20200924
  Receipt Date: 20210512
  Transmission Date: 20210717
  Serious: Yes (Other)
  Sender: FDA-Public Use
  Company Number: US-BAYER-2020-199460

PATIENT
  Age: 19 Year
  Sex: Male

DRUGS (11)
  1. KOGENATE FS [Suspect]
     Active Substance: ANTIHEMOPHILIC FACTOR, HUMAN RECOMBINANT
     Dosage: 2000 IU, NO FACTOR HAS BEEN GIVEN SINCE 04?SEP?2020
     Route: 042
     Dates: end: 20200904
  2. KOGENATE FS [Suspect]
     Active Substance: ANTIHEMOPHILIC FACTOR, HUMAN RECOMBINANT
     Dosage: 4 DOSES OF KOGENATE TO TREAT LEFT KNEE BLEDD
  3. KOGENATE FS [Suspect]
     Active Substance: ANTIHEMOPHILIC FACTOR, HUMAN RECOMBINANT
     Dosage: 2000 U, ONCE, USED 1 DOSE TO RESOLVE FOOT BLEED
     Route: 042
     Dates: start: 20201129, end: 20201129
  4. KOGENATE FS [Suspect]
     Active Substance: ANTIHEMOPHILIC FACTOR, HUMAN RECOMBINANT
     Dosage: 2000 IU, TREATED WITH ONE DOSE FOR LEFT ANKLE BLEED
     Route: 042
     Dates: start: 20210101
  5. KOGENATE FS [Suspect]
     Active Substance: ANTIHEMOPHILIC FACTOR, HUMAN RECOMBINANT
     Dosage: ONE DOSE AT SCHOOL (REASON NOT PROVIDED)
     Dates: start: 20210427
  6. KOGENATE FS [Suspect]
     Active Substance: ANTIHEMOPHILIC FACTOR, HUMAN RECOMBINANT
     Dosage: 2000 UNK
     Route: 042
  7. KOGENATE FS [Suspect]
     Active Substance: ANTIHEMOPHILIC FACTOR, HUMAN RECOMBINANT
     Dosage: 2000 UN
     Route: 042
  8. KOGENATE FS [Suspect]
     Active Substance: ANTIHEMOPHILIC FACTOR, HUMAN RECOMBINANT
     Dosage: 2000 IU, ONCE, TO TREAT LEFT HAND BLEED
     Route: 042
     Dates: start: 20200913, end: 20200913
  9. KOGENATE FS [Suspect]
     Active Substance: ANTIHEMOPHILIC FACTOR, HUMAN RECOMBINANT
     Dosage: 2000 UN
     Route: 042
  10. KOGENATE FS [Suspect]
     Active Substance: ANTIHEMOPHILIC FACTOR, HUMAN RECOMBINANT
     Dosage: 2090 U; PROPHYLAXIS
     Route: 042
  11. KOGENATE FS [Suspect]
     Active Substance: ANTIHEMOPHILIC FACTOR, HUMAN RECOMBINANT
     Dosage: 2000 UNK, THREE TIMES FOR FALL ON THE SAME KNEE AND BACK BLEED AT THE SAME TIME
     Route: 042

REACTIONS (13)
  - Haemorrhage [Recovered/Resolved]
  - Haemarthrosis [Recovered/Resolved]
  - Erythema [None]
  - Haematoma [Recovered/Resolved]
  - Haemarthrosis [None]
  - Pharyngitis streptococcal [None]
  - Inappropriate schedule of product administration [None]
  - Haemorrhage [Recovered/Resolved]
  - Fall [Recovered/Resolved]
  - Peripheral swelling [Recovered/Resolved]
  - Haemorrhage [None]
  - Emergency care [Recovered/Resolved]
  - Swelling [None]

NARRATIVE: CASE EVENT DATE: 20200901
